FAERS Safety Report 11660461 (Version 1)
Quarter: 2015Q4

REPORT INFORMATION
  Report Type: Report from Study
  Country: US (occurrence: US)
  Receive Date: 20151026
  Receipt Date: 20151026
  Transmission Date: 20160304
  Serious: Yes (Hospitalization)
  Sender: FDA-Public Use
  Company Number: US-ABBVIE-15K-163-1484984-00

PATIENT
  Age: 70 Year
  Sex: Male

DRUGS (1)
  1. HUMIRA [Suspect]
     Active Substance: ADALIMUMAB
     Indication: RHEUMATOID ARTHRITIS
     Route: 058
     Dates: start: 20150729

REACTIONS (7)
  - Renal failure [Recovering/Resolving]
  - Headache [Unknown]
  - Pneumonia [Recovered/Resolved]
  - Nervousness [Unknown]
  - Chills [Unknown]
  - Atrial fibrillation [Unknown]
  - Abdominal infection [Recovering/Resolving]

NARRATIVE: CASE EVENT DATE: 2015
